FAERS Safety Report 7236398-9 (Version None)
Quarter: 2010Q4

REPORT INFORMATION
  Report Type: 
  Country: None (occurrence: None)
  Receive Date: 20101130
  Receipt Date: 20100129
  Transmission Date: 20110411
  Serious: Yes (Other)
  Sender: FDA-Public Use
  Company Number: 2010BH002077

PATIENT
  Age: 17 Month
  Sex: Male

DRUGS (5)
  1. ADVATE [Suspect]
     Indication: FACTOR VIII DEFICIENCY
     Dosage: 592 IU;IV
     Route: 042
     Dates: start: 20080425
  2. ADVATE [Suspect]
  3. AMICAR [Concomitant]
  4. AMOXICILLIN [Concomitant]
  5. EMLA [Concomitant]

REACTIONS (1)
  - FACTOR VIII INHIBITION [None]
